FAERS Safety Report 7997864-1 (Version None)
Quarter: 2011Q4

REPORT INFORMATION
  Report Type: 
  Country: None (occurrence: None)
  Receive Date: 20111221
  Receipt Date: 20111210
  Transmission Date: 20120403
  Serious: Yes (Hospitalization, Other)
  Sender: FDA-Public Use
  Company Number: PHHY2010JP29044

PATIENT
  Sex: Male
  Weight: 65 kg

DRUGS (12)
  1. ALDACTONE [Concomitant]
     Indication: CARDIAC FAILURE CHRONIC
     Dosage: 25 MG, UNK
     Route: 048
     Dates: start: 20090503
  2. TRICHLORMETHIAZIDE [Concomitant]
     Indication: CARDIAC FAILURE CHRONIC
     Dosage: 1 MG, UNK
     Route: 048
     Dates: start: 20090503
  3. ACARDI [Concomitant]
     Indication: CARDIAC FAILURE CHRONIC
     Dosage: 5 MG, UNK
     Route: 048
     Dates: start: 20090503
  4. ACE INHIBITOR NOS [Concomitant]
  5. RASILEZ [Suspect]
     Indication: HYPERTENSION
     Dosage: 150 MG,
     Route: 048
     Dates: start: 20100312, end: 20100409
  6. ENALAPRIL MALEATE [Concomitant]
     Indication: CARDIAC FAILURE CHRONIC
     Dosage: 20 MG, UNK
     Route: 048
     Dates: start: 20090503
  7. LASIX [Concomitant]
     Indication: CARDIAC FAILURE CHRONIC
     Dosage: 40 MG, UNK
     Route: 048
     Dates: start: 20090503
  8. WARFARIN SODIUM [Concomitant]
     Indication: INTRAPERICARDIAL THROMBOSIS
     Dosage: 2.5 MG, UNK
     Route: 048
     Dates: start: 20090503
  9. CARVEDILOL [Concomitant]
     Indication: CARDIAC FAILURE CHRONIC
     Dosage: 10 MG, UNK
     Route: 048
     Dates: start: 20090503
  10. AMIODARONE HYDROCHLORIDE [Concomitant]
     Indication: VENTRICULAR TACHYCARDIA
     Dosage: 150 MG, UNK
     Route: 048
     Dates: start: 20090503
  11. LEVOTHYROXINE SODIUM [Concomitant]
     Indication: HYPOTHYROIDISM
     Dosage: 100 MG, UNK
     Route: 048
     Dates: start: 20090503
  12. SPIRONOLACTONE [Concomitant]

REACTIONS (13)
  - VENTRICULAR HYPOKINESIA [None]
  - BLOOD PRESSURE DIASTOLIC DECREASED [None]
  - DILATATION VENTRICULAR [None]
  - MALAISE [None]
  - RENAL FAILURE ACUTE [None]
  - DECREASED APPETITE [None]
  - BLOOD UREA INCREASED [None]
  - BRAIN NATRIURETIC PEPTIDE INCREASED [None]
  - VENTRICULAR HYPERTROPHY [None]
  - BLOOD POTASSIUM INCREASED [None]
  - WEIGHT INCREASED [None]
  - HEART RATE DECREASED [None]
  - BLOOD CREATININE INCREASED [None]
